FAERS Safety Report 9086642 (Version 2)
Quarter: 2013Q1

REPORT INFORMATION
  Report Type: Spontaneous
  Country: FR (occurrence: FR)
  Receive Date: 20130122
  Receipt Date: 20130122
  Transmission Date: 20140127
  Serious: Yes (Other)
  Sender: FDA-Public Use
  Company Number: FR-NICOBRDEVP-2012-10606

PATIENT
  Sex: Female

DRUGS (3)
  1. BISOPROLOL (UNKNOWN) [Suspect]
     Indication: PRODUCT USED FOR UNKNOWN INDICATION
     Dosage: 10 MG, UNKNOWN
     Route: 065
  2. IPRATROPIUM [Suspect]
     Dosage: UNK, UNKNOWN
     Route: 055
  3. TERBUTALINE [Suspect]
     Indication: PNEUMONIA
     Dosage: UNK, UNKNOWN
     Route: 055

REACTIONS (6)
  - Lymphoma [Unknown]
  - Cardiac failure [Unknown]
  - Respiratory failure [Unknown]
  - Rash [Unknown]
  - Oesophageal disorder [Not Recovered/Not Resolved]
  - Lung disorder [Not Recovered/Not Resolved]
